FAERS Safety Report 25763346 (Version 2)
Quarter: 2025Q4

REPORT INFORMATION
  Report Type: Spontaneous
  Country: CA (occurrence: CA)
  Receive Date: 20250905
  Receipt Date: 20251029
  Transmission Date: 20260118
  Serious: Yes (Hospitalization, Other)
  Sender: CELLTRION
  Company Number: CA-CELLTRION INC.-2025CA031257

PATIENT

DRUGS (2)
  1. INFLIXIMAB [Suspect]
     Active Substance: INFLIXIMAB
     Indication: Crohn^s disease
     Dosage: MAINTENANCE - 500 MG - SC  (SUBCUTANEOUS) EVERY 4 WEEKS
     Route: 058
     Dates: start: 20250818
  2. INFLIXIMAB [Suspect]
     Active Substance: INFLIXIMAB
     Dosage: 500 MG EVERY 4 WEEKS
     Route: 042
     Dates: start: 20250818

REACTIONS (6)
  - Spinal operation [Unknown]
  - Hospitalisation [Unknown]
  - Intentional product use issue [Unknown]
  - Intentional product use issue [Unknown]
  - Product dose omission issue [Unknown]
  - Underdose [Unknown]
